FAERS Safety Report 10449615 (Version 3)
Quarter: 2014Q4

REPORT INFORMATION
  Report Type: Spontaneous
  Country: JP (occurrence: JP)
  Receive Date: 20140912
  Receipt Date: 20141009
  Transmission Date: 20150528
  Serious: Yes (Life-Threatening)
  Sender: FDA-Public Use
  Company Number: JP-GE HEALTHCARE MEDICAL DIAGNOSTICS-OMPQ-PR-1409S-1118

PATIENT
  Age: 53 Year
  Sex: Male
  Weight: 75 kg

DRUGS (3)
  1. OMNIPAQUE [Suspect]
     Active Substance: IOHEXOL
     Indication: LUNG NEOPLASM MALIGNANT
     Route: 042
     Dates: start: 20140828, end: 20140828
  2. OMNIPAQUE [Suspect]
     Active Substance: IOHEXOL
     Indication: DIAGNOSTIC PROCEDURE
  3. CLEAR BONE [Concomitant]
     Dates: start: 20140828, end: 20140828

REACTIONS (2)
  - Anaphylactoid reaction [Recovered/Resolved]
  - No therapeutic response [None]

NARRATIVE: CASE EVENT DATE: 20140828
